FAERS Safety Report 15256611 (Version 1)
Quarter: 2018Q4

REPORT INFORMATION
  Report Type: Spontaneous
  Country: US (occurrence: US)
  Receive Date: 20180808
  Receipt Date: 20180808
  Transmission Date: 20190204
  Serious: Yes (Other)
  Sender: FDA-Public Use
  Company Number: US-STANDARD HOMEOPATHIC COMPANY-2053464

PATIENT
  Age: 9 Month
  Sex: Male

DRUGS (1)
  1. BABY TEETHING (HYLAND HOMEOPATHIC) [Suspect]
     Active Substance: HOMEOPATHICS
     Route: 048
     Dates: start: 2018, end: 2018

REACTIONS (2)
  - Seizure [None]
  - Brain injury [None]

NARRATIVE: CASE EVENT DATE: 2018
